FAERS Safety Report 5332826-4 (Version None)
Quarter: 2007Q2

REPORT INFORMATION
  Report Type: 
  Country: None (occurrence: None)
  Receive Date: 20070523
  Receipt Date: 20070514
  Transmission Date: 20071010
  Serious: Yes (Other)
  Sender: FDA-Public Use
  Company Number: FR-PFIZER INC-2007026551

PATIENT
  Sex: Male

DRUGS (1)
  1. LATANOPROST [Suspect]

REACTIONS (2)
  - ECZEMA [None]
  - HIRSUTISM [None]
